FAERS Safety Report 8193107-7 (Version None)
Quarter: 2012Q1

REPORT INFORMATION
  Report Type: 
  Country: None (occurrence: None)
  Receive Date: 20120308
  Receipt Date: 20120308
  Transmission Date: 20120608
  Serious: No
  Sender: FDA-Public Use
  Company Number: None

PATIENT
  Sex: Female

DRUGS (1)
  1. ORENCIA [Suspect]
     Indication: RHEUMATOID ARTHRITIS
     Dosage: 125MG
     Route: 058

REACTIONS (6)
  - NAUSEA [None]
  - LAZINESS [None]
  - ABDOMINAL DISTENSION [None]
  - MUSCLE SPASMS [None]
  - GASTROINTESTINAL PAIN [None]
  - NEPHROLITHIASIS [None]
